FAERS Safety Report 5316461-X (Version None)
Quarter: 2007Q2

REPORT INFORMATION
  Report Type: 
  Country: None (occurrence: None)
  Receive Date: 20070504
  Receipt Date: 20070424
  Transmission Date: 20071010
  Serious: Yes (Other)
  Sender: FDA-Public Use
  Company Number: PHBS2007BR06286

PATIENT
  Age: 72 Year
  Sex: Male

DRUGS (4)
  1. CAPTOPRIL [Concomitant]
     Indication: HYPERTENSION
     Dosage: 1 DF, BID
     Route: 048
  2. HYDROCHLOROTHIAZIDE [Concomitant]
     Indication: HYPERTENSION
     Dosage: 1 MG, QD
     Route: 048
  3. SEDILAX [Concomitant]
     Indication: EXOSTOSIS
     Dosage: 1 DF, BID
     Route: 048
  4. CLOZAPINE [Suspect]
     Dosage: 100 MG, ONCE/SINGLE
     Route: 048
     Dates: start: 20070409, end: 20070409

REACTIONS (6)
  - ACCIDENTAL EXPOSURE [None]
  - ASTHENIA [None]
  - DYSSTASIA [None]
  - FALL [None]
  - HALLUCINATION [None]
  - SPEECH DISORDER [None]
